FAERS Safety Report 19259498 (Version 2)
Quarter: 2021Q2

REPORT INFORMATION
  Report Type: Spontaneous
  Country: JP (occurrence: JP)
  Receive Date: 20210514
  Receipt Date: 20210630
  Transmission Date: 20210717
  Serious: Yes (Death, Hospitalization, Other)
  Sender: FDA-Public Use
  Company Number: JP-PFIZER INC-2021510068

PATIENT
  Age: 63 Year
  Sex: Female
  Weight: 48.7 kg

DRUGS (17)
  1. AMBRISENTAN [Suspect]
     Active Substance: AMBRISENTAN
     Indication: PULMONARY ARTERIAL HYPERTENSION
     Dosage: 5 MG, DAILY
     Dates: start: 2011, end: 2011
  2. AMBRISENTAN [Suspect]
     Active Substance: AMBRISENTAN
     Dosage: 2.5 MG, DAILY
     Dates: start: 2014, end: 2014
  3. SILDENAFIL CITRATE. [Suspect]
     Active Substance: SILDENAFIL CITRATE
     Dosage: 60 MG, DAILY
     Dates: start: 2009, end: 2012
  4. SILDENAFIL CITRATE. [Suspect]
     Active Substance: SILDENAFIL CITRATE
     Dosage: 40 MG, DAILY
     Dates: start: 2012, end: 2012
  5. AMBRISENTAN [Suspect]
     Active Substance: AMBRISENTAN
     Dosage: 5 MG, DAILY
     Dates: start: 2012, end: 2013
  6. AMBRISENTAN [Suspect]
     Active Substance: AMBRISENTAN
     Dosage: 5 MG, DAILY
     Dates: start: 2011, end: 2011
  7. SILDENAFIL CITRATE. [Suspect]
     Active Substance: SILDENAFIL CITRATE
     Dosage: 40 MG, DAILY
     Dates: start: 2009, end: 2009
  8. SILDENAFIL CITRATE. [Suspect]
     Active Substance: SILDENAFIL CITRATE
     Dosage: 20 MG, DAILY
     Dates: start: 2014, end: 2014
  9. SILDENAFIL CITRATE. [Suspect]
     Active Substance: SILDENAFIL CITRATE
     Dosage: 40 MG, DAILY
     Dates: start: 2013, end: 2014
  10. AMBRISENTAN [Suspect]
     Active Substance: AMBRISENTAN
     Dosage: 7.5 MG, DAILY
     Dates: start: 2011, end: 2012
  11. PREDNISOLONE. [Concomitant]
     Active Substance: PREDNISOLONE
  12. SILDENAFIL CITRATE. [Suspect]
     Active Substance: SILDENAFIL CITRATE
     Dosage: 60 MG, DAILY
     Dates: start: 2012, end: 2013
  13. SILDENAFIL CITRATE. [Suspect]
     Active Substance: SILDENAFIL CITRATE
     Indication: PULMONARY ARTERIAL HYPERTENSION
     Dosage: 20 MG, DAILY
     Dates: start: 2009, end: 2009
  14. AMBRISENTAN [Suspect]
     Active Substance: AMBRISENTAN
     Dosage: 2.5 MG, DAILY
     Dates: start: 2011, end: 2011
  15. AMBRISENTAN [Suspect]
     Active Substance: AMBRISENTAN
     Dosage: 2.5 MG, DAILY
     Dates: start: 2013
  16. AMBRISENTAN [Suspect]
     Active Substance: AMBRISENTAN
     Dosage: 5 MG, DAILY
  17. BERAPROST [Concomitant]
     Active Substance: BERAPROST
     Dosage: UNK
     Dates: start: 2008, end: 2013

REACTIONS (17)
  - Pericardial effusion [Unknown]
  - Ankyloglossia congenital [Unknown]
  - Rales [Unknown]
  - Arthralgia [Unknown]
  - Right ventricular systolic pressure increased [Unknown]
  - Death [Fatal]
  - Pleural effusion [Unknown]
  - Syncope [Unknown]
  - Brain natriuretic peptide increased [Unknown]
  - Heart rate increased [Unknown]
  - Hypoaesthesia [Unknown]
  - Bronchitis [Unknown]
  - Sclerema [Unknown]
  - Oedema peripheral [Unknown]
  - Jugular vein distension [Unknown]
  - Cyanosis [Unknown]
  - Joint swelling [Unknown]

NARRATIVE: CASE EVENT DATE: 2009
